FAERS Safety Report 18226662 (Version 1)
Quarter: 2020Q3

REPORT INFORMATION
  Report Type: Spontaneous
  Country: US (occurrence: US)
  Receive Date: 20200902
  Receipt Date: 20200902
  Transmission Date: 20201103
  Serious: Yes (Hospitalization)
  Sender: FDA-Public Use
  Company Number: None

PATIENT
  Age: 2 Year
  Sex: Female
  Weight: 10.43 kg

DRUGS (1)
  1. VIGABATRIN 500MG POWDER PACKETS 50/CT [Suspect]
     Active Substance: VIGABATRIN
     Indication: INFANTILE SPASMS
     Route: 048
     Dates: start: 20191212

REACTIONS (2)
  - Seizure [None]
  - Disease progression [None]

NARRATIVE: CASE EVENT DATE: 20200830
